FAERS Safety Report 19252457 (Version 1)
Quarter: 2021Q2

REPORT INFORMATION
  Report Type: Spontaneous
  Country: GB (occurrence: GB)
  Receive Date: 20210513
  Receipt Date: 20210513
  Transmission Date: 20210717
  Serious: Yes (Life-Threatening)
  Sender: FDA-Public Use
  Company Number: GB-ASTRAZENECA-2021A417430

PATIENT
  Age: 59 Year
  Sex: Male

DRUGS (3)
  1. METFORMIN [Concomitant]
     Active Substance: METFORMIN HYDROCHLORIDE
  2. ALOGLIPTIN. [Concomitant]
     Active Substance: ALOGLIPTIN
     Indication: ILL-DEFINED DISORDER
  3. DAPAGLIFLOZIN. [Suspect]
     Active Substance: DAPAGLIFLOZIN
     Indication: DIABETES MELLITUS
     Dosage: 10.0MG UNKNOWN
     Route: 048
     Dates: end: 20210501

REACTIONS (1)
  - Necrotising fasciitis [Recovering/Resolving]
